FAERS Safety Report 4870862-2 (Version None)
Quarter: 2006Q1

REPORT INFORMATION
  Report Type: 
  Country: None (occurrence: None)
  Receive Date: 20060103
  Receipt Date: 20051208
  Transmission Date: 20060701
  Serious: Yes (Death, Hospitalization, Other)
  Sender: FDA-Public Use
  Company Number: US-MERCK-0512USA01527

PATIENT
  Age: 71 Year
  Sex: Male
  Weight: 91 kg

DRUGS (19)
  1. ANALGESIC OR ANESTHETIC (UNSPECIFIED) [Concomitant]
     Route: 065
  2. [THERAPY UNSPECIFIED] [Concomitant]
     Route: 065
  3. [THERAPY UNSPECIFIED] [Concomitant]
     Route: 065
  4. VIOXX [Suspect]
     Indication: ARTHRITIS
     Route: 048
     Dates: start: 20000320, end: 20041111
  5. VIOXX [Suspect]
     Route: 048
     Dates: start: 20000320, end: 20041111
  6. WARFARIN [Concomitant]
     Route: 065
  7. NORVASC [Concomitant]
     Route: 065
  8. GLIPIZIDE [Concomitant]
     Route: 065
  9. AVAPRO [Concomitant]
     Route: 065
  10. AMITRIPTYLINE PAMOATE [Concomitant]
     Route: 065
  11. VALDECOXIB [Concomitant]
     Route: 065
  12. COUMADIN [Concomitant]
     Route: 065
  13. ZITHROMAX [Concomitant]
     Route: 065
  14. AVANDIA [Concomitant]
     Route: 065
  15. PLAVIX [Concomitant]
     Route: 065
  16. MOBIC [Concomitant]
     Route: 065
  17. FAMVIR [Concomitant]
     Route: 065
  18. LEVAQUIN [Concomitant]
     Route: 065
  19. ULTRACET [Concomitant]
     Route: 065

REACTIONS (8)
  - ADVERSE EVENT [None]
  - CEREBROVASCULAR ACCIDENT [None]
  - CHEST PAIN [None]
  - DEATH [None]
  - HEART RATE IRREGULAR [None]
  - INJURY [None]
  - MYOCARDIAL INFARCTION [None]
  - OVERDOSE [None]
